FAERS Safety Report 5319379-1 (Version None)
Quarter: 2007Q2

REPORT INFORMATION
  Report Type: 
  Country: None (occurrence: None)
  Receive Date: 20070508
  Receipt Date: 20070501
  Transmission Date: 20071010
  Serious: Yes (Hospitalization, Other)
  Sender: FDA-Public Use
  Company Number: US-ELI_LILLY_AND_COMPANY-US200705000448

PATIENT
  Age: 46 Year
  Sex: Male
  Weight: 191 kg

DRUGS (10)
  1. BYETTA [Suspect]
     Dosage: 10 UG, 2/D
     Route: 058
  2. AVANDIA [Concomitant]
     Dosage: 4 MG, DAILY (1/D)
     Route: 048
  3. ASPIRIN [Concomitant]
     Dosage: 320 MG, 2/D
     Route: 048
  4. DETROL [Concomitant]
     Dosage: 4 MG, DAILY (1/D)
     Route: 048
  5. VYTORIN [Concomitant]
     Dosage: 1 UNK, DAILY (1/D)
     Route: 048
  6. ZESTRIL [Concomitant]
     Dosage: 40 MG, DAILY (1/D)
     Route: 048
  7. GLUCOPHAGE [Concomitant]
     Dosage: 500 MG, DAILY (1/D)
     Route: 048
  8. NORVASC [Concomitant]
     Dosage: 10 MG, DAILY (1/D)
     Route: 048
  9. ALLOPURINOL [Concomitant]
     Dosage: 300 MG, DAILY (1/D)
     Route: 048
  10. POTASSIUM CHLORIDE [Concomitant]
     Dosage: 80 MEQ, DAILY (1/D)
     Route: 048

REACTIONS (5)
  - BLOOD PRESSURE INCREASED [None]
  - DIABETIC NEPHROPATHY [None]
  - DYSLIPIDAEMIA [None]
  - PANCREATITIS [None]
  - WEIGHT DECREASED [None]
